FAERS Safety Report 25557791 (Version 1)
Quarter: 2025Q3

REPORT INFORMATION
  Report Type: Spontaneous
  Country: US (occurrence: US)
  Receive Date: 20250715
  Receipt Date: 20250715
  Transmission Date: 20251021
  Serious: No
  Sender: PFIZER
  Company Number: US-PFIZER INC-PV202500084250

PATIENT
  Age: 64 Year
  Sex: Female

DRUGS (1)
  1. NURTEC ODT [Suspect]
     Active Substance: RIMEGEPANT SULFATE
     Dosage: 75 MG, 1X/DAY
     Route: 048
     Dates: end: 202411

REACTIONS (2)
  - Therapeutic product effect delayed [Unknown]
  - Off label use [Unknown]
